FAERS Safety Report 10309467 (Version 1)
Quarter: 2014Q3

REPORT INFORMATION
  Report Type: Spontaneous
  Country: ES (occurrence: ES)
  Receive Date: 20140717
  Receipt Date: 20140717
  Transmission Date: 20150326
  Serious: Yes (Death, Hospitalization)
  Sender: FDA-Public Use
  Company Number: ES-SUN PHARMACEUTICAL INDUSTRIES EUROPE B.V-2014SUN01507

PATIENT

DRUGS (1)
  1. BACLOFENO SUN 0,05 MG/1 ML SOLUCI?N INYECTABLE [Suspect]
     Active Substance: BACLOFEN
     Indication: MUSCLE SPASTICITY
     Route: 037

REACTIONS (9)
  - Depressed level of consciousness [Fatal]
  - Tachypnoea [Fatal]
  - Tachycardia [Fatal]
  - Blood albumin decreased [None]
  - Drug withdrawal syndrome [Fatal]
  - Muscle spasticity [Fatal]
  - Blood creatine phosphokinase increased [None]
  - Pyrexia [Fatal]
  - Blood urea increased [None]
